FAERS Safety Report 24101170 (Version 3)
Quarter: 2024Q3

REPORT INFORMATION
  Report Type: Spontaneous
  Country: ES (occurrence: ES)
  Receive Date: 20240717
  Receipt Date: 20240823
  Transmission Date: 20241016
  Serious: Yes (Other)
  Sender: AUROBINDO
  Company Number: ES-ABBVIE-5813657

PATIENT
  Age: 75 Year
  Sex: Male

DRUGS (6)
  1. QUETIAPINE [Suspect]
     Active Substance: QUETIAPINE
     Indication: Product used for unknown indication
     Dosage: DOSE INCREASED
     Route: 065
     Dates: end: 2024
  2. QUETIAPINE [Suspect]
     Active Substance: QUETIAPINE
     Dosage: INCREASE TO 75 AT NIGHT
     Route: 065
     Dates: start: 202406, end: 202406
  3. QUETIAPINE [Suspect]
     Active Substance: QUETIAPINE
     Dosage: INCREASING THE DOSE AT NIGHT
     Route: 065
     Dates: end: 202406
  4. QUETIAPINE [Suspect]
     Active Substance: QUETIAPINE
     Dosage: UNK,DOSE IS INCREASED UPTO 100 MG
     Route: 065
     Dates: start: 2024
  5. CARBIDOPA\LEVODOPA [Suspect]
     Active Substance: CARBIDOPA\LEVODOPA
     Indication: Parkinson^s disease
     Dosage: 240 MG/ML + 12 MG/ML SOLUCION PARA PERFUSION
     Route: 058
     Dates: start: 20240228, end: 202406
  6. CARBIDOPA\LEVODOPA [Suspect]
     Active Substance: CARBIDOPA\LEVODOPA
     Dosage: REDUCED THE NIGHTLY DOSE TO 0.30; 240 MG/ML + 12 MG/ML SOLUCION PARA PERFUSION
     Route: 058
     Dates: start: 202406

REACTIONS (9)
  - Hallucination [Unknown]
  - Hallucination, visual [Recovering/Resolving]
  - Delirium [Recovering/Resolving]
  - Cognitive disorder [Unknown]
  - Delusion [Unknown]
  - Confusional state [Recovering/Resolving]
  - Mental disorder [Unknown]
  - Nodule [Recovered/Resolved]
  - Unevaluable event [Unknown]

NARRATIVE: CASE EVENT DATE: 20240101
